FAERS Safety Report 6367276-5 (Version None)
Quarter: 2009Q3

REPORT INFORMATION
  Report Type: 
  Country: None (occurrence: None)
  Receive Date: 20090821
  Receipt Date: 20090605
  Transmission Date: 20100115
  Serious: No
  Sender: FDA-Public Use
  Company Number: 8044719

PATIENT
  Age: 39 Year
  Sex: Female

DRUGS (1)
  1. CIMZIA [Suspect]
     Indication: CROHN'S DISEASE
     Dosage: 40 MG SC
     Route: 058
     Dates: start: 20090326, end: 20090520

REACTIONS (6)
  - ARTHRALGIA [None]
  - EYE PAIN [None]
  - INSOMNIA [None]
  - MYALGIA [None]
  - PAIN IN EXTREMITY [None]
  - SERUM SICKNESS [None]
